FAERS Safety Report 9659359 (Version 2)
Quarter: 2013Q4

REPORT INFORMATION
  Report Type: Spontaneous
  Country: IT (occurrence: IT)
  Receive Date: 20131031
  Receipt Date: 20131111
  Transmission Date: 20140711
  Serious: Yes (Death)
  Sender: FDA-Public Use
  Company Number: IT-DRREDDYS-USA/ITL/13/0035273

PATIENT
  Age: 40 Year
  Sex: Male

DRUGS (2)
  1. QUETIAPINE [Suspect]
     Indication: PSYCHOTIC DISORDER
     Dosage: 200MGX2 AND 300MG IN THE EVENING
     Route: 065
  2. CLOZAPINE [Suspect]
     Indication: PSYCHOTIC DISORDER
     Dosage: 15 DROPS IN THE EVENING
     Route: 065

REACTIONS (2)
  - Sudden cardiac death [Fatal]
  - Ileus paralytic [Fatal]
